FAERS Safety Report 11544180 (Version 1)
Quarter: 2015Q3

REPORT INFORMATION
  Report Type: Report from Study
  Country: DE (occurrence: DE)
  Receive Date: 20150924
  Receipt Date: 20150924
  Transmission Date: 20151125
  Serious: Yes (Life-Threatening, Hospitalization)
  Sender: FDA-Public Use
  Company Number: DE-AMGEN-DEUNI2015097747

PATIENT
  Age: 58 Year
  Sex: Male

DRUGS (5)
  1. DENOSUMAB [Suspect]
     Active Substance: DENOSUMAB
     Indication: NEOPLASM
  2. BICALUTAMID [Concomitant]
     Active Substance: BICALUTAMIDE
     Dosage: 150 UNK, UNK
     Route: 048
     Dates: start: 20150218
  3. DENOSUMAB [Suspect]
     Active Substance: DENOSUMAB
     Indication: PROPHYLAXIS
     Dosage: 120 UNK, UNK
     Route: 058
     Dates: start: 20150318
  4. SUPREFACT [Concomitant]
     Active Substance: BUSERELIN
     Dosage: 9.45 UNK, UNK
     Route: 058
     Dates: start: 20150218
  5. DENOSUMAB [Suspect]
     Active Substance: DENOSUMAB
     Indication: METASTASES TO BONE

REACTIONS (1)
  - Chest pain [Recovered/Resolved]

NARRATIVE: CASE EVENT DATE: 20150504
